FAERS Safety Report 5827854-6 (Version None)
Quarter: 2008Q3

REPORT INFORMATION
  Report Type: 
  Country: None (occurrence: None)
  Receive Date: 20080728
  Receipt Date: 20080718
  Transmission Date: 20090109
  Serious: Yes (Hospitalization)
  Sender: FDA-Public Use
  Company Number: OMPQ-NO-0805S-0351

PATIENT
  Age: 7 Year
  Sex: Female

DRUGS (1)
  1. OMNIPAQUE 140 [Suspect]
     Indication: SPINAL MYELOGRAM
     Dosage: SINGLE DOSE, INTRADISCAL
     Route: 024

REACTIONS (1)
  - CSF PROTEIN ABNORMAL [None]
